FAERS Safety Report 5475978-8 (Version None)
Quarter: 2007Q4

REPORT INFORMATION
  Report Type: 
  Country: None (occurrence: None)
  Receive Date: 20071003
  Receipt Date: 20070925
  Transmission Date: 20080405
  Serious: Yes (Death, Other)
  Sender: FDA-Public Use
  Company Number: FR-ELI_LILLY_AND_COMPANY-FR200709005389

PATIENT
  Age: 76 Year
  Sex: Female

DRUGS (9)
  1. GEMZAR [Suspect]
     Indication: PANCREATIC CARCINOMA METASTATIC
     Dosage: 1680 MG, OTHER
     Route: 042
     Dates: start: 20061207, end: 20061214
  2. NEO-MERCAZOLE TAB [Concomitant]
     Route: 065
  3. LASIX [Concomitant]
     Dosage: UNK, UNKNOWN
     Route: 065
  4. DETENSIEL [Concomitant]
     Dosage: UNK, UNKNOWN
     Route: 065
  5. TEMESTA [Concomitant]
     Dosage: UNK, UNKNOWN
     Route: 065
  6. DI-ANTALVIC [Concomitant]
     Dosage: UNK, UNKNOWN
     Route: 065
  7. SKENAN [Concomitant]
     Dosage: UNK, UNKNOWN
     Route: 065
  8. FORLAX [Concomitant]
     Dosage: UNK, UNKNOWN
     Route: 065
  9. ZOFRAN [Concomitant]
     Dosage: 1 D/F, WEEKLY (1/W)
     Route: 042
     Dates: start: 20061207, end: 20061214

REACTIONS (4)
  - DEATH [None]
  - PRURITUS [None]
  - RASH PAPULAR [None]
  - TOXIC SKIN ERUPTION [None]
